FAERS Safety Report 10239375 (Version 1)
Quarter: 2014Q2

REPORT INFORMATION
  Report Type: Report from Study
  Country: US (occurrence: US)
  Receive Date: 20140616
  Receipt Date: 20140616
  Transmission Date: 20141212
  Serious: Yes (Other)
  Sender: FDA-Public Use
  Company Number: US-ABBVIE-14P-163-1229154-00

PATIENT
  Age: 29 Year
  Sex: Female
  Weight: 56.75 kg

DRUGS (9)
  1. LUPANETA PACK [Suspect]
     Indication: ENDOMETRIOSIS
     Dates: start: 20140320
  2. LUPANETA PACK [Suspect]
     Indication: ENDOMETRIOSIS
     Dates: start: 20140303
  3. DEPAKOTE [Concomitant]
     Indication: PRODUCT USED FOR UNKNOWN INDICATION
  4. HALDOL [Concomitant]
     Indication: PRODUCT USED FOR UNKNOWN INDICATION
  5. XANAX [Concomitant]
     Indication: PRODUCT USED FOR UNKNOWN INDICATION
  6. VICODIN [Concomitant]
     Indication: PRODUCT USED FOR UNKNOWN INDICATION
  7. ADDERALL [Concomitant]
     Indication: PRODUCT USED FOR UNKNOWN INDICATION
  8. PHENTERMINE [Concomitant]
     Indication: PRODUCT USED FOR UNKNOWN INDICATION
  9. TRAZODONE [Concomitant]
     Indication: PRODUCT USED FOR UNKNOWN INDICATION

REACTIONS (9)
  - Dizziness [Recovered/Resolved]
  - Diplopia [Unknown]
  - Rash papular [Not Recovered/Not Resolved]
  - Urinary tract infection [Recovered/Resolved]
  - Contusion [Not Recovered/Not Resolved]
  - Nausea [Recovered/Resolved]
  - Increased tendency to bruise [Unknown]
  - Vomiting [Recovered/Resolved]
  - Hypotension [Unknown]
